FAERS Safety Report 20657804 (Version 1)
Quarter: 2022Q1

REPORT INFORMATION
  Report Type: Spontaneous
  Country: US (occurrence: None)
  Receive Date: 20220330
  Receipt Date: 20220330
  Transmission Date: 20220423
  Serious: Yes (Hospitalization)
  Sender: FDA-Public Use
  Company Number: None

PATIENT
  Age: 70 Year
  Sex: Female

DRUGS (1)
  1. DIMETHYL FUMARATE [Suspect]
     Active Substance: DIMETHYL FUMARATE
     Indication: Multiple sclerosis
     Dosage: 240 MG BID ORAL
     Route: 048
     Dates: start: 2016

REACTIONS (5)
  - Laryngitis [None]
  - Osteoarthritis [None]
  - Immunodeficiency [None]
  - Thyroid disorder [None]
  - Goitre [None]

NARRATIVE: CASE EVENT DATE: 20220228
